FAERS Safety Report 6518936-4 (Version None)
Quarter: 2009Q4

REPORT INFORMATION
  Report Type: 
  Country: None (occurrence: None)
  Receive Date: 20091218
  Receipt Date: 20091209
  Transmission Date: 20100525
  Serious: Yes (Hospitalization, Other)
  Sender: FDA-Public Use
  Company Number: CL-70-2009

PATIENT
  Age: 61 Year
  Sex: Male

DRUGS (5)
  1. VENLAFAXINE [Suspect]
     Indication: DEPRESSION
     Dosage: 100 MG BD ORAL
     Route: 048
  2. CIPROFLOXACIN [Suspect]
  3. METHADONE [Suspect]
     Indication: BACK PAIN
  4. HYDROMORPHONE [Concomitant]
  5. OXYCODONE [Concomitant]

REACTIONS (2)
  - FALL [None]
  - SEROTONIN SYNDROME [None]
